FAERS Safety Report 13646675 (Version 1)
Quarter: 2017Q2

REPORT INFORMATION
  Report Type: Spontaneous
  Country: US (occurrence: US)
  Receive Date: 20170612
  Receipt Date: 20170612
  Transmission Date: 20170830
  Serious: Yes (Hospitalization)
  Sender: FDA-Public Use
  Company Number: None

PATIENT
  Age: 64 Year
  Sex: Female

DRUGS (31)
  1. TEMAZEPAM. [Concomitant]
     Active Substance: TEMAZEPAM
  2. ZANTAC [Concomitant]
     Active Substance: RANITIDINE HYDROCHLORIDE
  3. DEPAKOTE [Concomitant]
     Active Substance: DIVALPROEX SODIUM
  4. TOPAMAX [Concomitant]
     Active Substance: TOPIRAMATE
  5. MIACALCIN SPR [Concomitant]
  6. VENELAN [Concomitant]
  7. GLATOPA [Suspect]
     Active Substance: GLATIRAMER ACETATE
     Indication: MULTIPLE SCLEROSIS
     Route: 058
     Dates: start: 20130818
  8. LANSOPRAZOLE. [Concomitant]
     Active Substance: LANSOPRAZOLE
  9. AMLODIPINE [Concomitant]
     Active Substance: AMLODIPINE BESYLATE
  10. FIORICET [Concomitant]
     Active Substance: ACETAMINOPHEN\BUTALBITAL\CAFFEINE
  11. AMBIEN [Concomitant]
     Active Substance: ZOLPIDEM TARTRATE
  12. LYRICA [Concomitant]
     Active Substance: PREGABALIN
  13. FLUOXETINE [Concomitant]
     Active Substance: FLUOXETINE HYDROCHLORIDE
  14. CLARITIN-D NOS [Concomitant]
     Active Substance: LORATADINE\PSEUDOEPHEDRINE SULFATE
  15. MAXALT [Concomitant]
     Active Substance: RIZATRIPTAN BENZOATE
  16. KLONOPIN [Concomitant]
     Active Substance: CLONAZEPAM
  17. OMEPRAZOLE. [Concomitant]
     Active Substance: OMEPRAZOLE
  18. BACLOFIN [Concomitant]
  19. FLUTICASONE SPR [Concomitant]
  20. CALAN SR [Concomitant]
     Active Substance: VERAPAMIL HYDROCHLORIDE
  21. LISINOPRIL. [Concomitant]
     Active Substance: LISINOPRIL
  22. BELCOMP-PB SUP [Concomitant]
  23. KLOR-CON [Concomitant]
     Active Substance: POTASSIUM CHLORIDE
  24. SYNTHROID [Concomitant]
     Active Substance: LEVOTHYROXINE SODIUM
  25. TRAMADOL. [Concomitant]
     Active Substance: TRAMADOL
  26. PRADIN [Concomitant]
  27. CLOBETASOL [Concomitant]
     Active Substance: CLOBETASOL
  28. ASPIRIN. [Concomitant]
     Active Substance: ASPIRIN
  29. CARBIDOPA POW [Concomitant]
  30. LANTUS [Concomitant]
     Active Substance: INSULIN GLARGINE
  31. TOPIRAMATE. [Concomitant]
     Active Substance: TOPIRAMATE

REACTIONS (3)
  - Dizziness [None]
  - Multiple sclerosis [None]
  - Fall [None]

NARRATIVE: CASE EVENT DATE: 20170529
